FAERS Safety Report 14649300 (Version 2)
Quarter: 2018Q2

REPORT INFORMATION
  Report Type: Spontaneous
  Country: US (occurrence: US)
  Receive Date: 20180316
  Receipt Date: 20180517
  Transmission Date: 20180711
  Serious: No
  Sender: FDA-Public Use
  Company Number: US-PFIZER INC-2018106027

PATIENT
  Age: 1 Year
  Sex: Female

DRUGS (1)
  1. EUCRISA [Suspect]
     Active Substance: CRISABOROLE
     Indication: DERMATITIS
     Dosage: UNK, TWICE DAILY(APPLY TO AFFECTED AREA)

REACTIONS (4)
  - Tremor [Recovered/Resolved]
  - Application site pain [Recovered/Resolved]
  - Drug administered to patient of inappropriate age [Unknown]
  - Screaming [Recovered/Resolved]
